FAERS Safety Report 10403909 (Version 1)
Quarter: 2014Q1

REPORT INFORMATION
  Report Type: Spontaneous
  Country: US (occurrence: None)
  Receive Date: 20130815
  Receipt Date: 20130815
  Transmission Date: 20141002
  Serious: Yes (Other)
  Sender: FDA-Public Use
  Company Number: ADR-2013-00043

PATIENT
  Sex: Female

DRUGS (2)
  1. BACLOFEN INTRATHECAL [Suspect]
     Indication: MULTIPLE SCLEROSIS
  2. MORPHINE INTRATHECAL [Concomitant]

REACTIONS (5)
  - Multiple fractures [None]
  - Fall [None]
  - Loss of consciousness [None]
  - Fatigue [None]
  - Disease progression [None]
